FAERS Safety Report 19139665 (Version 1)
Quarter: 2021Q2

REPORT INFORMATION
  Report Type: Spontaneous
  Country: US (occurrence: US)
  Receive Date: 20210415
  Receipt Date: 20210415
  Transmission Date: 20210717
  Serious: Yes (Hospitalization)
  Sender: FDA-Public Use
  Company Number: None

PATIENT
  Age: 67 Year
  Sex: Male
  Weight: 91.3 kg

DRUGS (1)
  1. ERBITUX [Suspect]
     Active Substance: CETUXIMAB
     Dates: end: 20210202

REACTIONS (5)
  - Lymphadenopathy [None]
  - Pneumonia [None]
  - Lung abscess [None]
  - Pleural effusion [None]
  - Bronchiectasis [None]

NARRATIVE: CASE EVENT DATE: 20210328
